FAERS Safety Report 7949170-9 (Version None)
Quarter: 2011Q4

REPORT INFORMATION
  Report Type: 
  Country: None (occurrence: None)
  Receive Date: 20111130
  Receipt Date: 20111125
  Transmission Date: 20120403
  Serious: Yes (Hospitalization)
  Sender: FDA-Public Use
  Company Number: BE-ROCHE-1005116

PATIENT
  Age: 64 Year
  Sex: Female

DRUGS (11)
  1. PANTOPRAZOLE [Concomitant]
     Dates: start: 20111012
  2. VEMURAFENIB [Suspect]
     Indication: MALIGNANT MELANOMA
     Route: 048
     Dates: start: 20110722, end: 20111015
  3. CLARITIN [Concomitant]
     Dates: start: 19960101
  4. CALCITE D [Concomitant]
     Dosage: 1 SACHET
     Dates: start: 20110916
  5. FLUTICASONE PROPIONATE/SALMETEROL [Concomitant]
     Dosage: 50/100 MG
     Dates: start: 19960101
  6. VEMURAFENIB [Suspect]
     Route: 048
     Dates: start: 20111015, end: 20111021
  7. ZOCOR [Concomitant]
     Dates: start: 19960101
  8. MOVIPREP [Concomitant]
     Dates: start: 20110602
  9. ACETAMINOPHEN [Concomitant]
     Dates: start: 20110602
  10. DURAGESIC-100 [Concomitant]
     Dates: start: 20111012
  11. LORMETAZEPAM [Concomitant]
     Dates: start: 20110602

REACTIONS (1)
  - ABDOMINAL PAIN UPPER [None]
